FAERS Safety Report 13897846 (Version 1)
Quarter: 2017Q3

REPORT INFORMATION
  Report Type: Spontaneous
  Country: FR (occurrence: FR)
  Receive Date: 20170823
  Receipt Date: 20170823
  Transmission Date: 20171127
  Serious: Yes (Hospitalization)
  Sender: FDA-Public Use
  Company Number: FR-PFIZER INC-2017359719

PATIENT
  Age: 82 Year
  Sex: Female

DRUGS (11)
  1. ATARAX [Suspect]
     Active Substance: HYDROXYZINE HYDROCHLORIDE
     Dosage: UNK
     Dates: start: 201706
  2. DOLIPRANE [Suspect]
     Active Substance: ACETAMINOPHEN
     Dosage: UNK
  3. PROPYLEX [Suspect]
     Active Substance: PROPYLENE GLYCOL
     Indication: HYPERTHYROIDISM
     Dosage: UNK
     Dates: start: 20170620
  4. PROPYLEX [Suspect]
     Active Substance: PROPYLENE GLYCOL
     Dosage: DOSE INCREASED
     Dates: end: 20170811
  5. CORTANCYL [Suspect]
     Active Substance: PREDNISONE
     Dosage: UNK
     Dates: start: 20170613
  6. LYRICA [Suspect]
     Active Substance: PREGABALIN
     Dosage: UNK
  7. BACTRIM [Suspect]
     Active Substance: SULFAMETHOXAZOLE\TRIMETHOPRIM
     Dosage: UNK
     Dates: start: 20170614
  8. ALDACTONE [Suspect]
     Active Substance: SPIRONOLACTONE
     Dosage: UNK
  9. IMOVANE [Suspect]
     Active Substance: ZOPICLONE
     Dosage: UNK
  10. LOVENOX [Suspect]
     Active Substance: ENOXAPARIN SODIUM
     Dosage: UNK
     Dates: start: 20170613
  11. MOVICOL [Suspect]
     Active Substance: POLYETHYLENE GLYCOL 3350\POTASSIUM CHLORIDE\SODIUM BICARBONATE\SODIUM CHLORIDE
     Dosage: UNK

REACTIONS (1)
  - Agranulocytosis [Unknown]

NARRATIVE: CASE EVENT DATE: 20170811
